FAERS Safety Report 11829752 (Version 1)
Quarter: 2015Q4

REPORT INFORMATION
  Report Type: Spontaneous
  Country: FR (occurrence: FR)
  Receive Date: 20151212
  Receipt Date: 20151212
  Transmission Date: 20160305
  Serious: Yes (Death, Hospitalization, Other)
  Sender: FDA-Public Use
  Company Number: FR-ASTRAZENECA-2015SF23058

PATIENT
  Age: 29063 Day
  Sex: Female

DRUGS (5)
  1. XAGRID [Suspect]
     Active Substance: ANAGRELIDE HYDROCHLORIDE
     Indication: THROMBOCYTOSIS
     Route: 048
  2. COUMADINE [Suspect]
     Active Substance: WARFARIN SODIUM
     Route: 048
  3. BISOPROLOL [Suspect]
     Active Substance: BISOPROLOL
     Route: 048
  4. INEXIUM [Suspect]
     Active Substance: ESOMEPRAZOLE
     Route: 048
  5. TRIATEC [Suspect]
     Active Substance: RAMIPRIL
     Route: 048

REACTIONS (5)
  - Diarrhoea [Unknown]
  - Oedema [Unknown]
  - Hypomagnesaemia [Unknown]
  - Shock [Fatal]
  - Hypocalcaemia [Unknown]

NARRATIVE: CASE EVENT DATE: 20150401
